FAERS Safety Report 13185034 (Version 1)
Quarter: 2017Q1

REPORT INFORMATION
  Report Type: Spontaneous
  Country: US (occurrence: US)
  Receive Date: 20170203
  Receipt Date: 20170203
  Transmission Date: 20170428
  Serious: Yes (Other)
  Sender: FDA-Public Use
  Company Number: US-AMGEN-USASP2017017279

PATIENT
  Age: 6 Year
  Sex: Male

DRUGS (2)
  1. NEUPOGEN [Suspect]
     Active Substance: FILGRASTIM
     Indication: INFANTILE GENETIC AGRANULOCYTOSIS
     Dosage: 20 MUG/KG, QOD
     Route: 065
  2. NEUPOGEN [Suspect]
     Active Substance: FILGRASTIM
     Indication: ANTIPHOSPHOLIPID ANTIBODIES POSITIVE
     Dosage: 20 MUG/KG, QD
     Route: 065

REACTIONS (1)
  - Glomerulonephritis acute [Unknown]
